FAERS Safety Report 4985790-1 (Version None)
Quarter: 2006Q2

REPORT INFORMATION
  Report Type: 
  Country: None (occurrence: None)
  Receive Date: 20060421
  Receipt Date: 20060410
  Transmission Date: 20061013
  Serious: Yes (Other)
  Sender: FDA-Public Use
  Company Number: 2006S1000089

PATIENT
  Age: 60 Year
  Sex: Male

DRUGS (6)
  1. ACITRETIN [Suspect]
     Indication: ECZEMA
     Dosage: 25 MG; QD; PO
     Route: 048
     Dates: start: 20060126, end: 20060217
  2. ACITRETIN [Suspect]
     Indication: HYPERKERATOSIS
     Dosage: 25 MG; QD; PO
     Route: 048
     Dates: start: 20060126, end: 20060217
  3. SIMVASTATIN [Concomitant]
  4. SELOKEN /00376902/ [Concomitant]
  5. NITROGLYCERIN [Concomitant]
  6. TROMBYL [Concomitant]

REACTIONS (2)
  - INTRACRANIAL PRESSURE INCREASED [None]
  - VITREOUS DETACHMENT [None]
